FAERS Safety Report 13134053 (Version 2)
Quarter: 2017Q2

REPORT INFORMATION
  Report Type: Spontaneous
  Country: FR (occurrence: FR)
  Receive Date: 20170120
  Receipt Date: 20170407
  Transmission Date: 20170830
  Serious: Yes (Other)
  Sender: FDA-Public Use
  Company Number: FR-SA-2017SA005745

PATIENT
  Age: 71 Year
  Sex: Female

DRUGS (10)
  1. CEREZYME [Suspect]
     Active Substance: IMIGLUCERASE
     Indication: GAUCHER^S DISEASE
     Route: 041
     Dates: start: 1992, end: 201110
  2. PARACETAMOL [Suspect]
     Active Substance: ACETAMINOPHEN
     Dosage: FREQUENCY: AS NEEDED
     Route: 048
  3. TRAMADOL. [Suspect]
     Active Substance: TRAMADOL
     Route: 048
  4. VPRIV [Suspect]
     Active Substance: VELAGLUCERASE ALFA
     Indication: GAUCHER^S DISEASE
     Route: 042
     Dates: start: 201110
  5. ACTONEL [Suspect]
     Active Substance: RISEDRONATE SODIUM
     Dosage: FREQUENCY: 1 TABLET, 2 CONSECUTIVE DAYS PER MONTH
     Route: 048
  6. UVEDOSE [Suspect]
     Active Substance: CHOLECALCIFEROL
     Dosage: DOSE: 0.0111 DF (1 DF, 1 IN 3 MONTH)
     Route: 048
  7. XYZALL [Suspect]
     Active Substance: LEVOCETIRIZINE DIHYDROCHLORIDE
     Route: 048
  8. PIASCLEDINE [Suspect]
     Active Substance: AVOCADO OIL\SOYBEAN OIL
     Dosage: DOSE: 1 DF
     Route: 048
  9. ARTELAC [Suspect]
     Active Substance: HYPROMELLOSES
     Dosage: DOSE: 3 DROPS (1 DROP, 3 IN 1 DAY)
     Route: 065
  10. CALTRATE [Suspect]
     Active Substance: CALCIUM CARBONATE
     Dosage: DOSE: 1 DF
     Route: 048

REACTIONS (2)
  - Cholangiocarcinoma [Not Recovered/Not Resolved]
  - Hepatic cirrhosis [Not Recovered/Not Resolved]
